FAERS Safety Report 6385149-9 (Version None)
Quarter: 2009Q4

REPORT INFORMATION
  Report Type: 
  Country: None (occurrence: None)
  Receive Date: 20091002
  Receipt Date: 20090918
  Transmission Date: 20100525
  Serious: Yes (Other)
  Sender: FDA-Public Use
  Company Number: US-JNJFOC-20090706901

PATIENT
  Sex: Male
  Weight: 51.71 kg

DRUGS (2)
  1. TAPENTADOL HYDROCHLORIDE [Suspect]
     Indication: PAIN
     Route: 048
  2. MS CONTIN [Concomitant]
     Indication: PAIN
     Route: 065

REACTIONS (6)
  - CHILLS [None]
  - DECREASED APPETITE [None]
  - DYSPEPSIA [None]
  - HEART RATE INCREASED [None]
  - PALPITATIONS [None]
  - PRURITUS [None]
